FAERS Safety Report 21950764 (Version 1)
Quarter: 2023Q1

REPORT INFORMATION
  Report Type: Spontaneous
  Country: CN (occurrence: CN)
  Receive Date: 20230203
  Receipt Date: 20230203
  Transmission Date: 20230417
  Serious: Yes (Life-Threatening, Hospitalization)
  Sender: FDA-Public Use
  Company Number: CN-ELI_LILLY_AND_COMPANY-CN202301014061

PATIENT
  Age: 68 Year
  Sex: Female
  Weight: 61.5 kg

DRUGS (4)
  1. ALIMTA [Suspect]
     Active Substance: PEMETREXED DISODIUM
     Indication: Lung adenocarcinoma
     Dosage: 815 MG, SINGLE
     Route: 041
     Dates: start: 20230110, end: 20230110
  2. CARBOPLATIN [Suspect]
     Active Substance: CARBOPLATIN
     Indication: Lung adenocarcinoma
     Dosage: 490 MG, SINGLE
     Route: 041
     Dates: start: 20230110, end: 20230110
  3. SODIUM CHLORIDE [Concomitant]
     Active Substance: SODIUM CHLORIDE
     Indication: Medication dilution
     Dosage: 100 ML, SINGLE
     Route: 041
     Dates: start: 20230110, end: 20230110
  4. DEXTROSE [Concomitant]
     Active Substance: DEXTROSE
     Indication: Medication dilution
     Dosage: 250 ML, SINGLE
     Route: 041
     Dates: start: 20230110, end: 20230110

REACTIONS (1)
  - Pancytopenia [Recovering/Resolving]

NARRATIVE: CASE EVENT DATE: 20230119
